FAERS Safety Report 7516644-4 (Version None)
Quarter: 2011Q2

REPORT INFORMATION
  Report Type: 
  Country: None (occurrence: None)
  Receive Date: 20110601
  Receipt Date: 20110527
  Transmission Date: 20111010
  Serious: Yes (Death)
  Sender: FDA-Public Use
  Company Number: CO-PFIZER INC-2011116024

PATIENT
  Sex: Female

DRUGS (2)
  1. LIPITOR [Suspect]
     Dosage: 20 MG, 1X/DAY
     Dates: start: 20100113
  2. OLMESARTAN MEDOXOMIL [Suspect]
     Dosage: [20 MG, 12.5 MG], 1X/DAY
     Dates: start: 20041203

REACTIONS (1)
  - DEATH [None]
